FAERS Safety Report 10470473 (Version 2)
Quarter: 2015Q3

REPORT INFORMATION
  Report Type: Spontaneous
  Country: US (occurrence: None)
  Receive Date: 20140905
  Receipt Date: 20150902
  Transmission Date: 20151125
  Serious: Yes (Hospitalization)
  Sender: FDA-Public Use
  Company Number: A-US2013-91291

PATIENT
  Age: 20 Year
  Sex: Male

DRUGS (2)
  1. VELETRI [Suspect]
     Active Substance: EPOPROSTENOL
     Indication: COR PULMONALE CHRONIC
     Dosage: 22 NG/KG, PER MIN, INTRAVENOUS
     Route: 042
     Dates: start: 20131102
  2. ADCIRCA [Concomitant]
     Active Substance: TADALAFIL

REACTIONS (8)
  - Chest pain [None]
  - Tachycardia [None]
  - Device failure [None]
  - Dyspnoea [None]
  - Device infusion issue [None]
  - Drug dose omission [None]
  - Pallor [None]
  - Syncope [None]

NARRATIVE: CASE EVENT DATE: 20131108
